FAERS Safety Report 16473193 (Version 2)
Quarter: 2019Q3

REPORT INFORMATION
  Report Type: Spontaneous
  Country: JP (occurrence: JP)
  Receive Date: 20190625
  Receipt Date: 20190829
  Transmission Date: 20191004
  Serious: Yes (Other)
  Sender: FDA-Public Use
  Company Number: JP-VIIV HEALTHCARE LIMITED-JP2019JPN112334

PATIENT
  Age: 29 Year
  Sex: Male

DRUGS (8)
  1. TIVICAY [Suspect]
     Active Substance: DOLUTEGRAVIR SODIUM
     Dosage: UNK
     Route: 048
  2. DESCOVY [Concomitant]
     Active Substance: EMTRICITABINE\TENOFOVIR ALAFENAMIDE FUMARATE
     Dosage: UNK
  3. RIFAMPICIN [Concomitant]
     Active Substance: RIFAMPIN
     Dosage: UNK
  4. KALETRA [Concomitant]
     Active Substance: LOPINAVIR\RITONAVIR
     Dosage: UNK
  5. ISENTRESS [Concomitant]
     Active Substance: RALTEGRAVIR POTASSIUM
     Dosage: UNK
  6. PREZCOBIX [Concomitant]
     Active Substance: COBICISTAT\DARUNAVIR ETHANOLATE
     Dosage: UNK
  7. TRUVADA [Concomitant]
     Active Substance: EMTRICITABINE\TENOFOVIR DISOPROXIL FUMARATE
     Dosage: UNK
  8. PREZISTA [Concomitant]
     Active Substance: DARUNAVIR ETHANOLATE
     Dosage: UNK

REACTIONS (5)
  - Cytomegalovirus enterocolitis [Recovering/Resolving]
  - Therapeutic product effect incomplete [Unknown]
  - Pyrexia [Unknown]
  - Treatment noncompliance [Unknown]
  - Diarrhoea [Unknown]
